FAERS Safety Report 6173264-4 (Version None)
Quarter: 2009Q2

REPORT INFORMATION
  Report Type: 
  Country: None (occurrence: None)
  Receive Date: 20090430
  Receipt Date: 20090423
  Transmission Date: 20091009
  Serious: Yes (Disabling)
  Sender: FDA-Public Use
  Company Number: GB-ASTRAZENECA-2009GB00941

PATIENT
  Age: 63 Year
  Sex: Female
  Weight: 45 kg

DRUGS (3)
  1. OMEPRAZOLE [Suspect]
     Route: 048
     Dates: start: 20090126, end: 20090220
  2. CARBAMAZEPINE [Suspect]
     Indication: FACIAL NEURALGIA
     Route: 048
     Dates: start: 20090126, end: 20090220
  3. DICLOFENAC [Suspect]
     Indication: FACIAL NEURALGIA
     Route: 048
     Dates: start: 20090126, end: 20090220

REACTIONS (3)
  - CHILLS [None]
  - LIVER DISORDER [None]
  - MALAISE [None]
